FAERS Safety Report 21628375 (Version 1)
Quarter: 2022Q4

REPORT INFORMATION
  Report Type: Spontaneous
  Country: US (occurrence: US)
  Receive Date: 20221122
  Receipt Date: 20221122
  Transmission Date: 20230113
  Serious: No
  Sender: FDA-Public Use
  Company Number: US-PFIZER INC-PV202200106571

PATIENT
  Age: 74 Year

DRUGS (32)
  1. LABETALOL HYDROCHLORIDE [Suspect]
     Active Substance: LABETALOL HYDROCHLORIDE
     Dosage: UNK
  2. ACETAMINOPHEN [Concomitant]
     Active Substance: ACETAMINOPHEN
     Indication: Pyrexia
     Dosage: 325 MG, AS NEEDED, EVERY 4 HOURS FOR 30 DAYS
     Route: 048
  3. ACETAMINOPHEN [Concomitant]
     Active Substance: ACETAMINOPHEN
     Indication: Pain
  4. ALBUTEROL SULFATE [Concomitant]
     Active Substance: ALBUTEROL SULFATE
     Dosage: 3 MG, 4X/DAY, EVERY 6 HOURS FOR 30 DAYS
     Route: 055
  5. AMLODIPINE [Concomitant]
     Active Substance: AMLODIPINE BESYLATE
     Dosage: 10 MG, DAILY FOR 30 DAYS, QUANTITY 90 TABS
     Route: 048
  6. ASPIRIN [Concomitant]
     Active Substance: ASPIRIN
     Dosage: 81 MG, DAILY, FOR 30 DAYS, QUANTITY 90 TABS
     Route: 048
  7. ATORVASTATIN [Concomitant]
     Active Substance: ATORVASTATIN
     Dosage: 20 MG, DAILY FOR 30 DAYS, QUANTITY 90 TABS
     Route: 048
  8. BUDESONIDE\FORMOTEROL [Concomitant]
     Active Substance: BUDESONIDE\FORMOTEROL
     Dosage: 1 DF, 2X/DAY, QUANTITY 10, 2 GRAMS
  9. CLOPIDOGREL [Concomitant]
     Active Substance: CLOPIDOGREL BISULFATE
     Dosage: 75 MG, DAILY FOR 30 DAYS, QUANTITY 30 TABS
  10. CRISABOROLE [Concomitant]
     Active Substance: CRISABOROLE
     Dosage: UNK, 2X/DAY, APPLY FOR 30 DAYS, QUANTITY 60G
     Route: 061
  11. DONEPEZIL [Concomitant]
     Active Substance: DONEPEZIL
     Dosage: 10 MG, DAILY FOR 30 DAYS, QUANTITY 90 TABS
     Route: 048
  12. FAMOTIDINE [Concomitant]
     Active Substance: FAMOTIDINE
     Indication: Dyspepsia
     Dosage: 20 MG, 2X/DAY, QUANTITY 180 TABS
     Route: 048
  13. FERROUS SULFATE [Concomitant]
     Active Substance: FERROUS SULFATE
     Dosage: 325 MG, DAILY FOR 30 DAYS, QUANTITY 30 TABLETS
     Route: 048
  14. FLUOXETINE HYDROCHLORIDE [Concomitant]
     Active Substance: FLUOXETINE HYDROCHLORIDE
     Dosage: 40 MG, DAILY FOR 30 DAYS, QUANTITY: 90 CAPSULES
     Route: 048
  15. FLUTICASONE [Concomitant]
     Active Substance: FLUTICASONE
     Dosage: 1 DF, 2X/DAY
  16. FUROSEMIDE [Concomitant]
     Active Substance: FUROSEMIDE
     Dosage: 40 MG, 2X/DAY
     Route: 048
  17. HYDRALAZINE [Concomitant]
     Active Substance: HYDRALAZINE HYDROCHLORIDE
     Dosage: 50 MG, 4X/DAY, AS NEEDED FOR SYSTOLIC BP } 150
     Route: 048
  18. INSULIN GLARGINE [Concomitant]
     Active Substance: INSULIN GLARGINE
     Dosage: 60 IU, DAILY, QUANTITY 210 ML
     Route: 058
  19. IPRATROPIUM [Concomitant]
     Active Substance: IPRATROPIUM
     Indication: Dyspnoea
     Dosage: 3 ML, AS NEEDED, EVERY 4 HOURS UNTIL BREATHING RETURNS TO TARGET PEAK FLOW/PARAMETERS
  20. IPRATROPIUM [Concomitant]
     Active Substance: IPRATROPIUM
     Indication: Wheezing
  21. LORAZEPAM [Concomitant]
     Active Substance: LORAZEPAM
     Indication: Anxiety
     Dosage: 0.5 MG, AS NEEDED
     Route: 048
  22. LOSARTAN [Concomitant]
     Active Substance: LOSARTAN
     Dosage: 100 MG, DAILY FOR 30 DAYS
     Route: 048
  23. MELATONIN [Concomitant]
     Active Substance: MELATONIN
     Dosage: 9 MG, DAILY AT BEDTIME FOR 30 DAYS
     Route: 048
  24. METOPROLOL SUCCINATE [Concomitant]
     Active Substance: METOPROLOL SUCCINATE
     Dosage: 25 MG, DAILY
     Route: 048
  25. MONTELUKAST [Concomitant]
     Active Substance: MONTELUKAST SODIUM
     Dosage: 10 MG, DAILY EVERY EVENING
     Route: 048
  26. NITROGLYCERIN [Concomitant]
     Active Substance: NITROGLYCERIN
     Dosage: 0.4 MG, CYCLIC, EVERY 5 MINUTES FOR 30 DAYS, DO NOT EXCEED 3 DOSES PER EPISODE
     Route: 060
  27. NYSTATIN [Concomitant]
     Active Substance: NYSTATIN
     Dosage: 1 DF, DAILY
     Route: 061
  28. ONDANSETRON [Concomitant]
     Active Substance: ONDANSETRON
     Indication: Nausea
     Dosage: 4 MG, AS NEEDED, EVERY 8 HOURS FOR 30 DAYS
     Route: 048
  29. ONDANSETRON [Concomitant]
     Active Substance: ONDANSETRON
     Indication: Vomiting
  30. PANTOPRAZOLE [Concomitant]
     Active Substance: PANTOPRAZOLE
     Dosage: 40 MG, 2X/DAY
     Route: 048
  31. POTASSIUM CHLORIDE [Concomitant]
     Active Substance: POTASSIUM CHLORIDE
     Dosage: 20 MEQ, DAILY
     Route: 048
  32. TRIAMCINOLONE ACETONIDE [Concomitant]
     Active Substance: TRIAMCINOLONE ACETONIDE
     Dosage: 1 DF, DAILY

REACTIONS (2)
  - Drug hypersensitivity [Unknown]
  - Rash [Unknown]
